FAERS Safety Report 8954882 (Version 2)
Quarter: 2012Q4

REPORT INFORMATION
  Report Type: 
  Country: FR (occurrence: FR)
  Receive Date: 20121207
  Receipt Date: 20121216
  Transmission Date: 20130627
  Serious: Yes (Hospitalization, Other)
  Sender: FDA-Public Use
  Company Number: FR-ABBOTT-12P-056-1016713-00

PATIENT
  Age: 87 Year
  Sex: Male

DRUGS (15)
  1. ODRIK [Suspect]
     Indication: HYPERTENSION
     Route: 048
     Dates: end: 20121030
  2. ODRIK [Suspect]
     Dates: start: 20121105
  3. LASILIX [Suspect]
     Indication: HYPERTENSION
     Route: 048
     Dates: start: 20121001, end: 20121030
  4. LASILIX [Suspect]
  5. ALDACTONE [Suspect]
     Indication: HYPERTENSION
     Dosage: 0.5 dosage form (1 dosage form, each two days)
     Route: 048
     Dates: start: 20121001, end: 20121031
  6. PLAVIX [Concomitant]
     Indication: CEREBROVASCULAR ACCIDENT PROPHYLAXIS
     Route: 048
  7. CORDARONE [Concomitant]
     Indication: ATRIAL FIBRILLATION
     Route: 048
  8. MOLSIDOMINE [Concomitant]
     Indication: ATRIAL FIBRILLATION
     Route: 048
  9. CRESTOR [Concomitant]
     Indication: PRODUCT USED FOR UNKNOWN INDICATION
     Route: 048
  10. XATRAL [Concomitant]
     Indication: BENIGN PROSTATIC HYPERPLASIA
     Dosage: Form strength: 1mg LP
     Route: 048
  11. PERMIXON [Concomitant]
     Indication: PRODUCT USED FOR UNKNOWN INDICATION
     Route: 048
  12. SYMBICORT TURBUHALER [Concomitant]
     Indication: BRONCHOPNEUMOPATHY
     Dosage: Route: Buccal: twice
  13. IXPRIM [Concomitant]
     Indication: PRODUCT USED FOR UNKNOWN INDICATION
     Dosage: thrice
     Route: 048
  14. OMEPRAZOLE [Concomitant]
     Indication: GASTROOESOPHAGEAL REFLUX DISEASE
     Route: 048
  15. NATISPRAY [Concomitant]
     Indication: PRODUCT USED FOR UNKNOWN INDICATION
     Route: 055

REACTIONS (10)
  - Respiratory disorder [Unknown]
  - Renal failure acute [Recovered/Resolved]
  - Hyperkalaemia [Recovered/Resolved]
  - Abdominal pain [Unknown]
  - Urinary retention [Recovering/Resolving]
  - Nephropathy [Unknown]
  - Blood creatinine increased [Unknown]
  - Dyspnoea [Unknown]
  - Rales [Unknown]
  - Productive cough [Unknown]
